FAERS Safety Report 18697054 (Version 10)
Quarter: 2021Q2

REPORT INFORMATION
  Report Type: Spontaneous
  Country: TR (occurrence: TR)
  Receive Date: 20210104
  Receipt Date: 20210608
  Transmission Date: 20210717
  Serious: Yes (Hospitalization)
  Sender: FDA-Public Use
  Company Number: TR-CELGENEUS-TUR-20201208362

PATIENT
  Age: 55 Year
  Sex: Female
  Weight: 97 kg

DRUGS (11)
  1. PANTO [Concomitant]
     Indication: CHRONIC GASTRITIS
     Dosage: 40 MILLIGRAM
     Route: 048
     Dates: start: 1998
  2. TANTUM VERDE [Concomitant]
     Active Substance: BENZYDAMINE HYDROCHLORIDE
     Indication: MUCOSAL INFLAMMATION
     Dosage: 480 MILLILITER
     Route: 048
     Dates: start: 20200911
  3. GRANULOCYTE COLONY STIMULATING FACTOR [Concomitant]
     Active Substance: GRANULOCYTE COLONY-STIMULATING FACTOR NOS
     Indication: NEUTROPENIA
     Dosage: 48 MIU
     Route: 058
     Dates: start: 20200911, end: 20200911
  4. AZACITIDINE. [Suspect]
     Active Substance: AZACITIDINE
     Indication: ACUTE MYELOID LEUKAEMIA
     Dosage: 50 MILLIGRAM/SQ. METER
     Route: 058
     Dates: start: 20200810, end: 20200814
  5. AZACITIDINE. [Suspect]
     Active Substance: AZACITIDINE
     Dosage: 36 MILLIGRAM/SQ. METER
     Route: 058
     Dates: start: 20200921, end: 20201211
  6. VENETOCLAX. [Suspect]
     Active Substance: VENETOCLAX
     Dosage: 400 MILLIGRAM
     Route: 048
     Dates: start: 20210301
  7. GRANULOCYTE COLONY STIMULATING FACTOR [Concomitant]
     Active Substance: GRANULOCYTE COLONY-STIMULATING FACTOR NOS
     Dosage: 48 MIU
     Route: 058
     Dates: start: 20200918, end: 20200918
  8. VENETOCLAX. [Suspect]
     Active Substance: VENETOCLAX
     Indication: ACUTE MYELOID LEUKAEMIA
     Dosage: 400 MILLIGRAM
     Route: 048
     Dates: start: 20200810, end: 20201214
  9. VIRTENIX [Concomitant]
     Indication: CHRONIC HEPATITIS B
     Dosage: 245 MILLIGRAM
     Route: 048
     Dates: start: 2005
  10. AZACITIDINE. [Suspect]
     Active Substance: AZACITIDINE
     Dosage: 20 MILLIGRAM/SQ. METER
     Route: 058
     Dates: start: 20210301
  11. MIKOSTATIN [Concomitant]
     Active Substance: NYSTATIN
     Indication: MUCOSAL INFLAMMATION
     Dosage: 192 MILLILITER
     Route: 048
     Dates: start: 20200911

REACTIONS (1)
  - COVID-19 pneumonia [Recovered/Resolved]

NARRATIVE: CASE EVENT DATE: 20201224
